FAERS Safety Report 15014379 (Version 1)
Quarter: 2018Q2

REPORT INFORMATION
  Report Type: Report from Study
  Country: None (occurrence: US)
  Receive Date: 20180615
  Receipt Date: 20180615
  Transmission Date: 20180711
  Serious: Yes (Other)
  Sender: FDA-Public Use
  Company Number: US-ABBVIE-18K-163-2387656-00

PATIENT
  Sex: Female

DRUGS (1)
  1. HUMIRA [Suspect]
     Active Substance: ADALIMUMAB
     Indication: RHEUMATOID ARTHRITIS
     Route: 058

REACTIONS (7)
  - Peripheral swelling [Unknown]
  - Head injury [Unknown]
  - Amnesia [Unknown]
  - Joint range of motion decreased [Unknown]
  - Mood swings [Unknown]
  - Suicidal ideation [Unknown]
  - Road traffic accident [Unknown]
